FAERS Safety Report 17711790 (Version 1)
Quarter: 2020Q2

REPORT INFORMATION
  Report Type: Spontaneous
  Country: IT (occurrence: IT)
  Receive Date: 20200427
  Receipt Date: 20200427
  Transmission Date: 20200714
  Serious: Yes (Life-Threatening, Other)
  Sender: FDA-Public Use
  Company Number: IT-PFIZER INC-2020167073

PATIENT
  Age: 63 Year
  Sex: Male

DRUGS (5)
  1. TIROFIBAN [Suspect]
     Active Substance: TIROFIBAN
     Dosage: UNK
     Dates: start: 20200322, end: 20200325
  2. ZOLOFT [Suspect]
     Active Substance: SERTRALINE HYDROCHLORIDE
     Dosage: 25 MG, 1X/DAY
     Route: 048
     Dates: start: 20200330, end: 20200331
  3. BRILIQUE [Suspect]
     Active Substance: TICAGRELOR
     Dosage: 180 MG, 1X/DAY
     Route: 048
     Dates: start: 20200315, end: 20200321
  4. VANCOMYCIN [Suspect]
     Active Substance: VANCOMYCIN
     Dosage: 1 G, TOTAL
     Route: 042
     Dates: start: 20200325, end: 20200325
  5. HEPARIN CALCIUM [Suspect]
     Active Substance: HEPARIN CALCIUM
     Dosage: UNK
     Dates: start: 20200325, end: 20200330

REACTIONS (1)
  - Thrombocytopenia [Recovered/Resolved]

NARRATIVE: CASE EVENT DATE: 20200331
